FAERS Safety Report 9069546 (Version 3)
Quarter: 2013Q2

REPORT INFORMATION
  Report Type: Spontaneous
  Country: US (occurrence: US)
  Receive Date: 20130131
  Receipt Date: 20130401
  Transmission Date: 20140414
  Serious: Yes (Hospitalization)
  Sender: FDA-Public Use
  Company Number: US-SANOFI-AVENTIS-2013SA007786

PATIENT
  Age: 54 Year
  Sex: Female
  Weight: 99.6 kg

DRUGS (9)
  1. LOVENOX [Suspect]
     Indication: VENOUS THROMBOSIS
     Dosage: DOSE:100 MILLIGRAM(S)/MILLILITRE
     Route: 051
     Dates: start: 20121120, end: 20121218
  2. INVESTIGATIONAL DRUG [Suspect]
     Indication: GLIOBLASTOMA
     Route: 048
     Dates: start: 20111113, end: 20121209
  3. INVESTIGATIONAL DRUG [Suspect]
     Indication: GLIOBLASTOMA
     Route: 048
     Dates: start: 20121217, end: 20130114
  4. AVASTIN [Suspect]
     Indication: GLIOBLASTOMA
     Route: 051
     Dates: start: 20120817, end: 20121223
  5. DEXAMETHASONE [Suspect]
     Dates: start: 20121209
  6. AMLODIPINE [Concomitant]
     Dates: start: 20121209
  7. BACTRIM DS [Concomitant]
     Dates: start: 20121209
  8. LEVOTHYROXINE [Concomitant]
     Dates: start: 20121209
  9. ESOMEPRAZOLE [Concomitant]
     Route: 042
     Dates: start: 20121209

REACTIONS (4)
  - Gastric ulcer [Recovering/Resolving]
  - Anaemia [Recovering/Resolving]
  - Fatigue [Recovering/Resolving]
  - Gastric haemorrhage [Recovered/Resolved]
